FAERS Safety Report 7562926-X (Version None)
Quarter: 2011Q2

REPORT INFORMATION
  Report Type: 
  Country: None (occurrence: None)
  Receive Date: 20110622
  Receipt Date: 20110607
  Transmission Date: 20111010
  Serious: Yes (Life-Threatening, Hospitalization)
  Sender: FDA-Public Use
  Company Number: US-ROCHE-783778

PATIENT
  Age: 56 Year
  Sex: Male

DRUGS (6)
  1. COUMADIN [Suspect]
     Route: 065
     Dates: start: 20100625, end: 20100628
  2. SORAFENIB [Suspect]
     Dosage: DAYS 1-5, 8-12, 15-19,22-26
     Route: 048
     Dates: start: 20100107, end: 20100311
  3. LOVENOX [Suspect]
     Route: 065
     Dates: start: 20100623, end: 20100628
  4. BEVACIZUMAB [Suspect]
     Dosage: DAY 1,15
     Route: 042
     Dates: start: 20100107, end: 20100722
  5. COUMADIN [Suspect]
     Route: 065
     Dates: start: 20100623, end: 20100623
  6. COUMADIN [Suspect]
     Route: 065
     Dates: start: 20100624, end: 20100624

REACTIONS (4)
  - BLOOD CREATININE INCREASED [None]
  - URETERIC OBSTRUCTION [None]
  - HAEMORRHAGE URINARY TRACT [None]
  - EMBOLISM [None]
